FAERS Safety Report 18406805 (Version 4)
Quarter: 2021Q2

REPORT INFORMATION
  Report Type: Other
  Country: CA (occurrence: CA)
  Receive Date: 20201021
  Receipt Date: 20210426
  Transmission Date: 20210717
  Serious: Yes (Death, Hospitalization, Other)
  Sender: FDA-Public Use
  Company Number: CA-APOTEX-2020AP019892

PATIENT
  Age: 78 Year
  Sex: Female

DRUGS (12)
  1. SANDOSTATIN LAR DEPOT [Suspect]
     Active Substance: OCTREOTIDE ACETATE
     Indication: IRON DEFICIENCY
     Dosage: 20 MILLIGRAM, Q.M.T.
     Route: 030
  2. COUMADIN [Concomitant]
     Active Substance: WARFARIN SODIUM
     Indication: PRODUCT USED FOR UNKNOWN INDICATION
     Dosage: 1.5 DOSAGE FORM, QD
     Route: 065
  3. ATENOLOL. [Concomitant]
     Active Substance: ATENOLOL
     Indication: PRODUCT USED FOR UNKNOWN INDICATION
     Dosage: 50 MILLIGRAM, QD
     Route: 065
  4. TARO?WARFARIN [Concomitant]
     Active Substance: WARFARIN
     Indication: PRODUCT USED FOR UNKNOWN INDICATION
     Dosage: 5 MILLIGRAM, QD
     Route: 065
  5. SANDOSTATIN [Suspect]
     Active Substance: OCTREOTIDE ACETATE
     Indication: IRON DEFICIENCY
     Dosage: 20 MILLIGRAM, Q.M.T.
     Route: 030
  6. CLINDAMYCIN. [Suspect]
     Active Substance: CLINDAMYCIN
     Indication: INFECTION
     Dosage: 1800 MILLIGRAM
     Route: 042
  7. SANDOSTATIN LAR DEPOT [Suspect]
     Active Substance: OCTREOTIDE ACETATE
     Indication: GASTROINTESTINAL HAEMORRHAGE
  8. FUROSEMIDE. [Concomitant]
     Active Substance: FUROSEMIDE
     Indication: PRODUCT USED FOR UNKNOWN INDICATION
     Dosage: 80 MILLIGRAM, QD
     Route: 065
  9. XARELTO [Concomitant]
     Active Substance: RIVAROXABAN
     Indication: ATRIAL FIBRILLATION
     Dosage: UNK
     Route: 065
  10. GABAPENTIN. [Suspect]
     Active Substance: GABAPENTIN
     Indication: PRODUCT USED FOR UNKNOWN INDICATION
     Dosage: UNK
     Route: 065
  11. SANDOSTATIN [Suspect]
     Active Substance: OCTREOTIDE ACETATE
     Indication: GASTROINTESTINAL HAEMORRHAGE
     Dosage: UNK
     Route: 065
  12. DIGOXIN. [Concomitant]
     Active Substance: DIGOXIN
     Indication: PRODUCT USED FOR UNKNOWN INDICATION
     Dosage: 0.125 MILLIGRAM, QD
     Route: 065

REACTIONS (62)
  - Blood pressure diastolic decreased [Fatal]
  - Bursitis [Fatal]
  - Drug hypersensitivity [Fatal]
  - Erythema [Fatal]
  - Joint swelling [Fatal]
  - Paralysis [Fatal]
  - Drug ineffective [Fatal]
  - Off label use [Unknown]
  - Blood pressure diastolic increased [Fatal]
  - Cellulitis [Fatal]
  - Dizziness [Fatal]
  - Fluid overload [Fatal]
  - Lethargy [Fatal]
  - Pain [Fatal]
  - Scleroderma [Fatal]
  - Body temperature decreased [Fatal]
  - Cardiac failure congestive [Fatal]
  - Chest discomfort [Fatal]
  - Cyst [Fatal]
  - Death [Fatal]
  - Hypersomnia [Fatal]
  - Pain in extremity [Fatal]
  - Skin infection [Fatal]
  - Blood glucose increased [Fatal]
  - Blood pressure systolic increased [Fatal]
  - Pallor [Fatal]
  - Pleural effusion [Fatal]
  - Asthenia [Fatal]
  - Atrial fibrillation [Fatal]
  - Injection site haemorrhage [Fatal]
  - Multi-organ disorder [Fatal]
  - Post procedural complication [Fatal]
  - Product use in unapproved indication [Fatal]
  - Chest pain [Fatal]
  - Faeces discoloured [Fatal]
  - Hip fracture [Fatal]
  - Infected skin ulcer [Fatal]
  - Nausea [Fatal]
  - Oral infection [Fatal]
  - Urinary tract infection [Fatal]
  - Wound [Fatal]
  - Cardiac failure [Fatal]
  - Fatigue [Fatal]
  - Haematochezia [Fatal]
  - Haemoglobin decreased [Fatal]
  - Localised infection [Fatal]
  - Malaise [Fatal]
  - Melaena [Fatal]
  - Pyrexia [Fatal]
  - Thrombosis [Fatal]
  - Venous haemorrhage [Fatal]
  - Arthralgia [Fatal]
  - Arthritis [Fatal]
  - Ascites [Fatal]
  - Back pain [Fatal]
  - Dyspnoea [Fatal]
  - Femur fracture [Fatal]
  - Neck pain [Fatal]
  - Oedema peripheral [Fatal]
  - Pulmonary hypertension [Fatal]
  - Rectal haemorrhage [Fatal]
  - Skin ulcer [Fatal]
